FAERS Safety Report 10544543 (Version 1)
Quarter: 2014Q4

REPORT INFORMATION
  Report Type: Spontaneous
  Country: GB (occurrence: None)
  Receive Date: 20141016
  Receipt Date: 20141016
  Transmission Date: 20150529
  Serious: Yes (Other)
  Sender: FDA-Public Use
  Company Number: 2014GMK010318

PATIENT
  Age: 43 Year
  Sex: Female
  Weight: 76 kg

DRUGS (7)
  1. NITROFURANTON [Concomitant]
  2. DERMOL [Concomitant]
     Active Substance: BENZALKONIUM CHLORIDE\CHLORHEXIDINE HYDROCHLORIDE\ISOPROPYL MYRISTATE\PARAFFIN
  3. DICLOFENAC POTASSIUM. [Concomitant]
     Active Substance: DICLOFENAC POTASSIUM
  4. PREDNISOLONE. [Concomitant]
     Active Substance: PREDNISOLONE
  5. FLUOXETINE [Concomitant]
     Active Substance: FLUOXETINE\FLUOXETINE HYDROCHLORIDE
  6. GABAPENTIN? [Suspect]
     Active Substance: GABAPENTIN
     Indication: NECK PAIN
     Dosage: UNK
     Dates: start: 20140704
  7. FUSIDIC ACID [Concomitant]
     Active Substance: FUSIDIC ACID

REACTIONS (2)
  - Stevens-Johnson syndrome [None]
  - Dermatitis bullous [None]

NARRATIVE: CASE EVENT DATE: 20140711
